FAERS Safety Report 10235006 (Version 3)
Quarter: 2014Q2

REPORT INFORMATION
  Report Type: Spontaneous
  Country: US (occurrence: US)
  Receive Date: 20140613
  Receipt Date: 20140619
  Transmission Date: 20141212
  Serious: Yes (Other)
  Sender: FDA-Public Use
  Company Number: PHEH2014US008440

PATIENT
  Sex: Female

DRUGS (2)
  1. FORADIL [Suspect]
     Indication: ASTHMA
     Dosage: 2 DF (2 PUFFS), BID
     Route: 055
  2. COMBIVENT [Concomitant]
     Dosage: UNK UKN, QID

REACTIONS (10)
  - Upper limb fracture [Not Recovered/Not Resolved]
  - Stress [Unknown]
  - Arthralgia [Not Recovered/Not Resolved]
  - Onychoclasis [Not Recovered/Not Resolved]
  - Chest pain [Not Recovered/Not Resolved]
  - Fatigue [Not Recovered/Not Resolved]
  - Cough [Not Recovered/Not Resolved]
  - Incorrect dose administered [Not Recovered/Not Resolved]
  - Product packaging issue [Unknown]
  - Device malfunction [Unknown]
